FAERS Safety Report 12992265 (Version 2)
Quarter: 2016Q4

REPORT INFORMATION
  Report Type: Spontaneous
  Country: US (occurrence: US)
  Receive Date: 20161201
  Receipt Date: 20161231
  Transmission Date: 20170207
  Serious: Yes (Death, Hospitalization)
  Sender: FDA-Public Use
  Company Number: US-BAXTER-2016BAX060352

PATIENT
  Sex: Female

DRUGS (1)
  1. TISSEEL [Suspect]
     Active Substance: FIBRINOGEN HUMAN\THROMBIN HUMAN
     Indication: PRODUCT USED FOR UNKNOWN INDICATION
     Dosage: AT 1:00PM
     Route: 065
     Dates: start: 20161122, end: 20161122

REACTIONS (2)
  - Traumatic liver injury [Not Recovered/Not Resolved]
  - Disease complication [Fatal]
